FAERS Safety Report 4447774-1 (Version None)
Quarter: 2004Q3

REPORT INFORMATION
  Report Type: 
  Country: None (occurrence: None)
  Receive Date: 20040913
  Receipt Date: 20040723
  Transmission Date: 20050211
  Serious: Yes (Death, Life-Threatening)
  Sender: FDA-Public Use
  Company Number: 200415587US

PATIENT
  Sex: Female
  Weight: 204.5 kg

DRUGS (15)
  1. LOVENOX [Suspect]
     Indication: DISSEMINATED INTRAVASCULAR COAGULATION
     Route: 058
     Dates: start: 20031025, end: 20031103
  2. ANALGESIC LIQ [Concomitant]
     Dosage: DOSE: UNK
  3. SKELAXIN [Concomitant]
     Indication: MYALGIA
     Route: 048
  4. VISTARIL [Concomitant]
     Indication: VOMITING
     Dosage: DOSE: 25/50
     Route: 048
     Dates: start: 20030101
  5. ROCEPHIN [Concomitant]
     Dosage: DOSE: UNK
  6. NYSTATIN [Concomitant]
     Indication: RASH
     Dosage: DOSE: UNK
     Route: 051
  7. FERROUS SULFATE TAB [Concomitant]
     Dosage: DOSE: UNK
  8. DIFLUCAN [Concomitant]
     Indication: FUNGAL INFECTION
     Dosage: DOSE: UNK
     Dates: start: 20041027, end: 20041031
  9. SYNERCID [Concomitant]
     Dosage: DOSE: UNK
  10. MORPHINE [Concomitant]
     Dosage: DOSE: UNK
  11. HYDROCODONE [Concomitant]
     Dosage: DOSE: 5/500
     Route: 048
  12. SLOW-FE [Concomitant]
     Route: 048
     Dates: start: 20020801, end: 20031102
  13. PROVERA [Concomitant]
     Route: 048
     Dates: start: 20030903, end: 20031003
  14. ZOLOFT [Concomitant]
     Indication: DEPRESSION
     Dosage: DOSE: UNK
     Route: 048
     Dates: end: 20030801
  15. LASIX [Concomitant]
     Indication: FLUID RETENTION
     Route: 048
     Dates: end: 20030801

REACTIONS (11)
  - BRAIN DEATH [None]
  - CARDIO-RESPIRATORY ARREST [None]
  - ELECTROCARDIOGRAM ABNORMAL [None]
  - FIBRIN D DIMER INCREASED [None]
  - HYPOXIA [None]
  - LABORATORY TEST ABNORMAL [None]
  - METASTATIC NEOPLASM [None]
  - SUPRAVENTRICULAR EXTRASYSTOLES [None]
  - TACHYCARDIA [None]
  - THROMBOCYTOPENIA [None]
  - VENTRICULAR EXTRASYSTOLES [None]
